FAERS Safety Report 20562979 (Version 1)
Quarter: 2022Q1

REPORT INFORMATION
  Report Type: Spontaneous
  Country: US (occurrence: US)
  Receive Date: 20220307
  Receipt Date: 20220307
  Transmission Date: 20220423
  Serious: Yes (Hospitalization, Other)
  Sender: FDA-Public Use
  Company Number: US-GLAND PHARMA LIMITED-2022US001194

PATIENT
  Age: 41 Year
  Sex: Male

DRUGS (2)
  1. MESNA [Suspect]
     Active Substance: MESNA
     Indication: Osteosarcoma
     Dosage: UNK
     Route: 065
  2. CYCLOPHOSPHAMIDE [Concomitant]
     Active Substance: CYCLOPHOSPHAMIDE
     Indication: Osteosarcoma
     Dosage: UNK
     Route: 065

REACTIONS (2)
  - Klebsiella bacteraemia [Recovered/Resolved]
  - Off label use [Unknown]
